FAERS Safety Report 22256782 (Version 2)
Quarter: 2023Q2

REPORT INFORMATION
  Report Type: Report from Study
  Country: CA (occurrence: CA)
  Receive Date: 20230426
  Receipt Date: 20230519
  Transmission Date: 20230722
  Serious: Yes (Hospitalization, Other)
  Sender: FDA-Public Use
  Company Number: CA-INCYTE CORPORATION-2023IN002193

PATIENT
  Age: 76 Year
  Sex: Female

DRUGS (5)
  1. TAFASITAMAB [Suspect]
     Active Substance: TAFASITAMAB
     Indication: Diffuse large B-cell lymphoma
     Dosage: 12 MILLIGRAM/KILOGRAM, ONCE Q2 WEEKS
     Route: 042
     Dates: start: 20230214
  2. TAFASITAMAB [Suspect]
     Active Substance: TAFASITAMAB
     Dosage: 200 MILLIGRAM, AS PER PM SCHEDULE (CYCLE 1 (5 INFUSIONS))
     Route: 042
     Dates: start: 20230214
  3. TAFASITAMAB [Suspect]
     Active Substance: TAFASITAMAB
     Dosage: 200 MILLIGRAM, AS PER PM SCHEDULE
     Route: 042
     Dates: start: 20230307
  4. BENADRYL [Concomitant]
     Active Substance: DIPHENHYDRAMINE HYDROCHLORIDE
     Indication: Premedication
     Route: 065
  5. TYLENOL [Concomitant]
     Active Substance: ACETAMINOPHEN
     Indication: Product used for unknown indication
     Dosage: 650 MILLIGRAM
     Route: 048

REACTIONS (4)
  - Gastrointestinal disorder [Unknown]
  - Cerebrovascular accident [Unknown]
  - SARS-CoV-2 test positive [Unknown]
  - Hypotension [Unknown]

NARRATIVE: CASE EVENT DATE: 20230311
